FAERS Safety Report 8016051-4 (Version None)
Quarter: 2011Q4

REPORT INFORMATION
  Report Type: 
  Country: None (occurrence: None)
  Receive Date: 20111230
  Receipt Date: 20111219
  Transmission Date: 20120403
  Serious: Yes (Other)
  Sender: FDA-Public Use
  Company Number: BR-US-EMD SERONO, INC.-7103346

PATIENT
  Sex: Female

DRUGS (5)
  1. FLUOXETINE [Concomitant]
  2. BACLOFEN [Concomitant]
  3. REBIF [Suspect]
     Route: 058
     Dates: start: 20110801, end: 20111219
  4. OXYBUTININE(OXYBUTYNIN) [Concomitant]
  5. REBIF [Suspect]
     Indication: RELAPSING-REMITTING MULTIPLE SCLEROSIS
     Route: 058
     Dates: start: 20090701, end: 20110801

REACTIONS (8)
  - CONSTIPATION [None]
  - MUSCLE SPASTICITY [None]
  - MYELITIS [None]
  - CENTRAL NERVOUS SYSTEM LESION [None]
  - GAIT DISTURBANCE [None]
  - VISION BLURRED [None]
  - URINARY INCONTINENCE [None]
  - BALANCE DISORDER [None]
